FAERS Safety Report 9383552 (Version 2)
Quarter: 2013Q4

REPORT INFORMATION
  Report Type: Spontaneous
  Country: US (occurrence: US)
  Receive Date: 20130704
  Receipt Date: 20131031
  Transmission Date: 20140711
  Serious: No
  Sender: FDA-Public Use
  Company Number: US-PFIZER INC-2013137510

PATIENT
  Age: 86 Year
  Sex: Female
  Weight: 60.32 kg

DRUGS (14)
  1. LYRICA [Suspect]
     Indication: FIBROMYALGIA
     Dosage: 75 MG, AS NEEDED
     Dates: start: 200710, end: 20120830
  2. LYRICA [Suspect]
     Indication: BACK PAIN
     Dosage: 50 MG, DAILY
  3. METOPROLOL TARTRATE [Concomitant]
     Indication: HYPERTENSION
     Dosage: 25 MG, 2X/DAY
  4. BUMETANIDE [Concomitant]
     Dosage: 2 MG, 1X/DAY
  5. CYMBALTA [Concomitant]
     Dosage: 60 MG, 1X/DAY
  6. CYANOCOBALAMIN [Concomitant]
     Dosage: 1000 MCG/ML SOLUTION 1 ML, MONTHLY
  7. VITAMIN D [Concomitant]
     Dosage: 1 DF, 1X/DAY
  8. LIDODERM [Concomitant]
     Dosage: UNK,1 PATCH TO INTACT SKIN REMOVE AFTER 12 HOURS ONCE A DAY,
  9. HYDROCODONE W/ACETAMINOPHEN [Concomitant]
     Dosage: 7.5-500 MG 1 DF, 2X/DAY
  10. HYDROCODONE W/ACETAMINOPHEN [Concomitant]
     Dosage: HYDROCODONE (10 MG)/ACETAMINOPHEN (500 MG),3X/DAY
  11. POTASSIUM CHLORIDE [Concomitant]
     Indication: BLOOD POTASSIUM DECREASED
     Dosage: 10% LIQUID TAKE 1 + ? TABLESPOONFULS , 2X/DAY
  12. XANAX [Concomitant]
     Indication: ANXIETY
     Dosage: 0.05 MG, DAILY
  13. ONDANSETRON [Concomitant]
     Indication: NAUSEA
     Dosage: 4 MG, 1 TABLET BID AS NEEDED
  14. ONDANSETRON [Concomitant]
     Indication: VOMITING

REACTIONS (8)
  - Drug withdrawal syndrome [Recovered/Resolved]
  - Impaired driving ability [Recovered/Resolved]
  - Nausea [Recovered/Resolved]
  - Malaise [Recovered/Resolved]
  - Dysstasia [Recovered/Resolved]
  - Headache [Recovered/Resolved]
  - Blood pressure decreased [Not Recovered/Not Resolved]
  - Weight increased [Unknown]
